FAERS Safety Report 21332803 (Version 2)
Quarter: 2022Q3

REPORT INFORMATION
  Report Type: Spontaneous
  Country: CN (occurrence: CN)
  Receive Date: 20220914
  Receipt Date: 20220916
  Transmission Date: 20221027
  Serious: Yes (Other)
  Sender: FDA-Public Use
  Company Number: CN-PFIZER INC-PV202200061037

PATIENT
  Age: 5 Year
  Sex: Male
  Weight: 26 kg

DRUGS (2)
  1. CYTARABINE [Suspect]
     Active Substance: CYTARABINE
     Indication: Chemotherapy
     Dosage: 70 MG, 1X/DAY
     Route: 041
     Dates: start: 20220820, end: 20220822
  2. CYTARABINE [Suspect]
     Active Substance: CYTARABINE
     Indication: Neoplasm

REACTIONS (4)
  - Hallucination [Recovered/Resolved]
  - Illusion [Recovered/Resolved]
  - Cognitive disorder [Recovered/Resolved]
  - Dysphoria [Recovered/Resolved]

NARRATIVE: CASE EVENT DATE: 20220829
